FAERS Safety Report 5278435-7 (Version None)
Quarter: 2007Q1

REPORT INFORMATION
  Report Type: 
  Country: None (occurrence: None)
  Receive Date: 20070322
  Receipt Date: 20070319
  Transmission Date: 20070707
  Serious: Yes (Other)
  Sender: FDA-Public Use
  Company Number: 011651

PATIENT
  Age: 56 Year
  Sex: Female

DRUGS (1)
  1. THEOPHYLLINE [Suspect]
     Indication: ASTHMA
     Dosage: 300 MG, QD, ORAL
     Route: 048
     Dates: start: 20070318, end: 20070318

REACTIONS (1)
  - HYPERSENSITIVITY [None]
